FAERS Safety Report 17015852 (Version 1)
Quarter: 2019Q4

REPORT INFORMATION
  Report Type: Spontaneous
  Country: US (occurrence: US)
  Receive Date: 20191003
  Receipt Date: 20191003
  Transmission Date: 20200122
  Serious: No
  Sender: FDA-Public Use
  Company Number: None

PATIENT
  Age: 71 Year
  Sex: Female
  Weight: 93.44 kg

DRUGS (2)
  1. GENERIC OF WELLBUTRIN [Suspect]
     Active Substance: BUPROPION HYDROCHLORIDE
     Dates: start: 20190319, end: 20190806
  2. GENERIC OF WELLBUTRIN [Suspect]
     Active Substance: BUPROPION HYDROCHLORIDE
     Indication: ANXIETY
     Dates: start: 20100112, end: 20120207

REACTIONS (3)
  - Malaise [None]
  - Product substitution issue [None]
  - Insurance issue [None]
